FAERS Safety Report 8850168 (Version 1)
Quarter: 2012Q4

REPORT INFORMATION
  Report Type: 
  Country: US (occurrence: US)
  Receive Date: 20121019
  Receipt Date: 20121019
  Transmission Date: 20130627
  Serious: Yes (Death)
  Sender: FDA-Public Use
  Company Number: US-GLAXOSMITHKLINE-A0998049A

PATIENT
  Age: 42 Year
  Sex: Female

DRUGS (3)
  1. VOTRIENT [Suspect]
     Indication: NEOPLASM SKIN
     Dosage: 800MG Per day
     Route: 048
     Dates: start: 20120913, end: 201210
  2. GABAPENTIN [Concomitant]
  3. OXYCODONE HYDROCHLORIDE [Concomitant]

REACTIONS (1)
  - Death [Fatal]
